FAERS Safety Report 13967709 (Version 7)
Quarter: 2021Q4

REPORT INFORMATION
  Report Type: Spontaneous
  Country: US (occurrence: US)
  Receive Date: 20170914
  Receipt Date: 20211007
  Transmission Date: 20220303
  Serious: Yes (Other)
  Sender: FDA-Public Use
  Company Number: US-PFIZER INC-2017395125

PATIENT
  Age: 51 Year
  Sex: Male
  Weight: 127 kg

DRUGS (6)
  1. LYRICA [Suspect]
     Active Substance: PREGABALIN
     Indication: Neuropathy peripheral
     Dosage: 200 MG, 2X/DAY (TWO BY MOUTH EVERY DAY)
     Route: 048
     Dates: start: 2016
  2. LYRICA [Suspect]
     Active Substance: PREGABALIN
     Indication: Pain in extremity
     Dosage: 300 MG, 3X/DAY (EVERY 8 HOURS)
     Route: 048
  3. LYRICA [Suspect]
     Active Substance: PREGABALIN
     Dosage: 600 MG, 3X/DAY ( 2 CAPSULE BY MOUTH EVERY 8 HOURS)
     Route: 048
  4. LYRICA [Suspect]
     Active Substance: PREGABALIN
     Dosage: 300 MG, 3X/DAY (EVERY 8 HOURS)
     Route: 048
  5. HYDROCODONE [Concomitant]
     Active Substance: HYDROCODONE
     Indication: Neuralgia
     Dosage: 7.5 MG, AS NEEDED
     Route: 048
     Dates: start: 2016
  6. HYDROCODONE [Concomitant]
     Active Substance: HYDROCODONE
     Indication: Neuropathy peripheral

REACTIONS (4)
  - Drug withdrawal syndrome [Unknown]
  - Insomnia [Unknown]
  - Feeding disorder [Unknown]
  - Prescribed overdose [Unknown]
